FAERS Safety Report 9052665 (Version 4)
Quarter: 2013Q3

REPORT INFORMATION
  Report Type: Report from Study
  Country: US (occurrence: US)
  Receive Date: 20130207
  Receipt Date: 20130925
  Transmission Date: 20140515
  Serious: Yes (Life-Threatening, Hospitalization, Disabling)
  Sender: FDA-Public Use
  Company Number: US-UCBSA-077051

PATIENT
  Age: 45 Year
  Sex: Male
  Weight: 96.4 kg

DRUGS (18)
  1. CERTOLIZUMAB PEGOL [Suspect]
     Indication: RHEUMATOID ARTHRITIS
     Dosage: 200 MG (17 DOSES),  400 MG (2 DOSES)
     Route: 058
     Dates: start: 20120611, end: 20130121
  2. ULTRACET [Concomitant]
     Indication: ARTHRALGIA
     Dosage: 37.5/ 325 MG PRN
     Route: 048
     Dates: start: 200605
  3. VALTREX [Concomitant]
     Indication: EYE IRRITATION
     Route: 048
     Dates: start: 200605
  4. FOLIC ACID [Concomitant]
     Indication: PROPHYLAXIS
     Route: 048
     Dates: start: 20120606, end: 20121113
  5. FOLIC ACID [Concomitant]
     Indication: PROPHYLAXIS
     Route: 048
     Dates: start: 201211
  6. HYDROCODONE [Concomitant]
     Indication: ARTHRALGIA
     Dosage: 5/325 MG
     Route: 048
     Dates: start: 201112
  7. HYDROCODONE [Concomitant]
     Indication: ARTHRALGIA
     Dosage: 5/500 MG
     Route: 048
     Dates: start: 201112, end: 20120723
  8. ASPIRIN [Concomitant]
     Indication: CARDIOVASCULAR EVENT PROPHYLAXIS
     Route: 048
     Dates: start: 2006
  9. BENAZEPRIL [Concomitant]
     Indication: HYPERTENSION
     Route: 048
     Dates: start: 2006
  10. PNEUMOCOCCAL VACCINE [Concomitant]
     Indication: PROPHYLAXIS
     Dosage: 0.5 CC ONCE
     Route: 030
     Dates: start: 20121024, end: 20121024
  11. ALPRAZOLAM [Concomitant]
     Indication: ANXIETY
     Route: 048
     Dates: start: 20121210
  12. PAROXETINE [Concomitant]
     Indication: ANXIETY
     Route: 048
  13. METHOTREXATE [Concomitant]
     Indication: RHEUMATOID ARTHRITIS
     Route: 048
     Dates: start: 20120611
  14. NABUMETONE [Concomitant]
     Indication: ARTHRALGIA
     Route: 048
     Dates: start: 201205
  15. SIMVASTATIN [Concomitant]
     Indication: HYPERCHOLESTEROLAEMIA
     Dosage: QHS
     Route: 048
     Dates: start: 2006
  16. DEPO MEDROL [Concomitant]
     Indication: JOINT EFFUSION
     Dosage: ONCE INJECTION
     Dates: start: 20120723, end: 20120723
  17. TORADOL [Concomitant]
     Indication: JOINT EFFUSION
     Dosage: ONCE
     Route: 030
     Dates: start: 20120820, end: 20120820
  18. INFLUENZA VACCINE [Concomitant]
     Indication: ANTIVIRAL PROPHYLAXIS
     Dosage: ONCE
     Route: 030
     Dates: start: 20121024, end: 20121024

REACTIONS (7)
  - Sepsis [Recovered/Resolved]
  - Localised infection [Recovered/Resolved]
  - Leg amputation [Recovered/Resolved]
  - Pulmonary embolism [Recovered/Resolved]
  - Respiratory failure [Recovered/Resolved]
  - Renal failure [Recovered/Resolved]
  - Pneumonia [Recovered/Resolved]
